FAERS Safety Report 14266186 (Version 1)
Quarter: 2017Q4

REPORT INFORMATION
  Report Type: Report from Study
  Country: JP (occurrence: JP)
  Receive Date: 20171210
  Receipt Date: 20171210
  Transmission Date: 20180321
  Serious: Yes (Hospitalization)
  Sender: FDA-Public Use
  Company Number: JP-ASTRAZENECA-2017SF24413

PATIENT
  Age: 78 Year
  Sex: Male
  Weight: 61 kg

DRUGS (1)
  1. TAGRISSO [Suspect]
     Active Substance: OSIMERTINIB
     Indication: NON-SMALL CELL LUNG CANCER
     Route: 048
     Dates: start: 20161115

REACTIONS (2)
  - Skin exfoliation [Recovering/Resolving]
  - Skin infection [Recovered/Resolved]

NARRATIVE: CASE EVENT DATE: 20161212
